FAERS Safety Report 11905548 (Version 1)
Quarter: 2016Q1

REPORT INFORMATION
  Report Type: Report from Study
  Country: US (occurrence: US)
  Receive Date: 20160109
  Receipt Date: 20160109
  Transmission Date: 20160526
  Serious: Yes (Other)
  Sender: FDA-Public Use
  Company Number: US-AMGEN-USASL2016000859

PATIENT
  Age: 56 Year
  Sex: Male

DRUGS (1)
  1. SENSIPAR [Suspect]
     Active Substance: CINACALCET HYDROCHLORIDE
     Indication: HYPERPARATHYROIDISM SECONDARY
     Dosage: 30 MG, QD
     Route: 048

REACTIONS (3)
  - Cellulitis [Unknown]
  - Infection [Unknown]
  - Fall [Unknown]

NARRATIVE: CASE EVENT DATE: 201512
